FAERS Safety Report 25729995 (Version 1)
Quarter: 2025Q3

REPORT INFORMATION
  Report Type: Other
  Country: US (occurrence: US)
  Receive Date: 20250827
  Receipt Date: 20250827
  Transmission Date: 20251020
  Serious: Yes (Hospitalization, Other)
  Sender: ESJAY PHARMA
  Company Number: US-ESJAY PHARMA-000956

PATIENT
  Age: 79 Year
  Sex: Male

DRUGS (4)
  1. ESCITALOPRAM [Suspect]
     Active Substance: ESCITALOPRAM OXALATE
     Indication: Major depression
  2. BUPROPION\DEXTROMETHORPHAN [Concomitant]
     Active Substance: BUPROPION\DEXTROMETHORPHAN
     Indication: Major depression
  3. ESCITALOPRAM [Suspect]
     Active Substance: ESCITALOPRAM OXALATE
     Indication: Major depression
  4. BUPROPION\DEXTROMETHORPHAN [Concomitant]
     Active Substance: BUPROPION\DEXTROMETHORPHAN
     Indication: Major depression

REACTIONS (2)
  - Drug interaction [Unknown]
  - Serotonin syndrome [Recovered/Resolved]
